FAERS Safety Report 5592285-3 (Version None)
Quarter: 2008Q1

REPORT INFORMATION
  Report Type: 
  Country: None (occurrence: None)
  Receive Date: 20080111
  Receipt Date: 20080103
  Transmission Date: 20080703
  Serious: Yes (Other)
  Sender: FDA-Public Use
  Company Number: 18134

PATIENT

DRUGS (3)
  1. CARBOPLATIN [Suspect]
     Indication: NEOPLASM MALIGNANT
     Dosage: 2 AUC WEEKLY
  2. SIMULATION MODULATED ACCELERATED RADIATION THERAPY [Suspect]
     Indication: NEOPLASM MALIGNANT
  3. TAXOL [Suspect]
     Indication: NEOPLASM MALIGNANT
     Dosage: 40 MG/M2 WEEKLY

REACTIONS (1)
  - OESOPHAGEAL STENOSIS [None]
